FAERS Safety Report 22031131 (Version 4)
Quarter: 2023Q4

REPORT INFORMATION
  Report Type: Report from Study
  Country: JP (occurrence: JP)
  Receive Date: 20230223
  Receipt Date: 20231219
  Transmission Date: 20240109
  Serious: Yes (Other)
  Sender: FDA-Public Use
  Company Number: JP-PFIZER INC-PV202200131964

PATIENT
  Age: 36 Year
  Sex: Male
  Weight: 47.3 kg

DRUGS (7)
  1. SIROLIMUS [Suspect]
     Active Substance: SIROLIMUS
     Indication: Lymphatic malformation
     Dosage: 2 MG, 1X/DAY (2 MG,1 D)
     Route: 048
     Dates: start: 20211026, end: 20211228
  2. SIROLIMUS [Suspect]
     Active Substance: SIROLIMUS
     Dosage: 1.5 MG, 1X/DAY (1.5 MG,1 D)
     Route: 048
     Dates: start: 20211229, end: 20221012
  3. SIROLIMUS [Suspect]
     Active Substance: SIROLIMUS
     Dosage: 1 MG,1X/DAY (1 MG,1 D)
     Route: 048
     Dates: start: 20221013, end: 20221213
  4. SIROLIMUS [Suspect]
     Active Substance: SIROLIMUS
     Dosage: 2 MG, 1X/DAY (2 MG,1 D)
     Route: 048
     Dates: end: 202305
  5. SIROLIMUS [Suspect]
     Active Substance: SIROLIMUS
     Dosage: 1.5 MG, 1X/DAY (1.5 MG,1 D
     Route: 048
     Dates: start: 20230627
  6. XYLOCAINE [Suspect]
     Active Substance: LIDOCAINE HYDROCHLORIDE
     Dosage: UNK, SPRAY
     Route: 065
  7. XYLOCAINE [Concomitant]
     Active Substance: LIDOCAINE HYDROCHLORIDE
     Indication: Prophylaxis
     Dosage: UNK (SPRAY)
     Route: 048
     Dates: start: 20230517

REACTIONS (5)
  - Stomatitis [Recovering/Resolving]
  - Glossodynia [Recovered/Resolved]
  - Stomatitis [Not Recovered/Not Resolved]
  - Hepatitis B surface antigen positive [Recovered/Resolved]
  - Nausea [Recovered/Resolved]

NARRATIVE: CASE EVENT DATE: 20211110
